FAERS Safety Report 4480160-7 (Version None)
Quarter: 2004Q4

REPORT INFORMATION
  Report Type: 
  Country: None (occurrence: None)
  Receive Date: 20041020
  Receipt Date: 20041014
  Transmission Date: 20050328
  Serious: Yes (Hospitalization)
  Sender: FDA-Public Use
  Company Number: BR-MERCK-0410BRA00363

PATIENT
  Age: 67 Year
  Sex: Male

DRUGS (2)
  1. VIOXX [Suspect]
     Indication: MUSCULOSKELETAL PAIN
     Route: 065
     Dates: start: 20010705, end: 20040930
  2. VIOXX [Suspect]
     Indication: PAIN
     Route: 065
     Dates: start: 20010705, end: 20040930

REACTIONS (1)
  - CEREBROVASCULAR ACCIDENT [None]
